FAERS Safety Report 14407051 (Version 1)
Quarter: 2018Q1

REPORT INFORMATION
  Report Type: Other
  Country: US (occurrence: US)
  Receive Date: 20180118
  Receipt Date: 20180118
  Transmission Date: 20180509
  Serious: Yes (Other)
  Sender: FDA-Public Use
  Company Number: US-THE PROACTIV LLC-2040292

PATIENT
  Age: 26 Year
  Sex: Female

DRUGS (5)
  1. TAMSULOSIN [Concomitant]
     Active Substance: TAMSULOSIN
  2. PROACTIV RENEWING CLEANSER [Suspect]
     Active Substance: BENZOYL PEROXIDE
     Indication: ACNE
     Route: 061
     Dates: start: 20171217, end: 20171217
  3. HYDROCODONE [Concomitant]
     Active Substance: HYDROCODONE
  4. OXYCODONE [Concomitant]
     Active Substance: OXYCODONE
  5. ALBUTEROL. [Suspect]
     Active Substance: ALBUTEROL

REACTIONS (3)
  - Skin burning sensation [Recovered/Resolved]
  - Rash macular [Recovered/Resolved]
  - Erythema [Recovered/Resolved]

NARRATIVE: CASE EVENT DATE: 20171217
